FAERS Safety Report 8347213-4 (Version None)
Quarter: 2012Q2

REPORT INFORMATION
  Report Type: 
  Country: None (occurrence: None)
  Receive Date: 20120509
  Receipt Date: 20120313
  Transmission Date: 20120825
  Serious: No
  Sender: FDA-Public Use
  Company Number: US-BAUSCH-2012BL001861

PATIENT
  Age: 82 Year
  Sex: Male

DRUGS (4)
  1. PILOCARPINE HYDROCHLORIDE [Concomitant]
     Indication: GLAUCOMA
     Route: 047
  2. DORZOLAMIDE HCL AND TIMOLOL MALEATE [Suspect]
     Indication: GLAUCOMA
     Route: 047
     Dates: start: 20120214, end: 20120313
  3. ALPHAGAN [Concomitant]
     Indication: GLAUCOMA
     Route: 047
  4. LUMIGAN [Concomitant]
     Indication: GLAUCOMA
     Route: 047

REACTIONS (1)
  - VISION BLURRED [None]
